FAERS Safety Report 25282791 (Version 1)
Quarter: 2025Q2

REPORT INFORMATION
  Report Type: Report from Study
  Country: SA (occurrence: SA)
  Receive Date: 20250508
  Receipt Date: 20250508
  Transmission Date: 20250717
  Serious: Yes (Other)
  Sender: LUNDBECK
  Company Number: SA-LUNDBECK-DKLU4014195

PATIENT
  Age: 41 Year
  Sex: Female

DRUGS (1)
  1. VYEPTI [Suspect]
     Active Substance: EPTINEZUMAB-JJMR
     Indication: Migraine
     Dosage: 100 MILLIGRAM
     Route: 041

REACTIONS (2)
  - Neoplasm [Not Recovered/Not Resolved]
  - Fatigue [Not Recovered/Not Resolved]
